FAERS Safety Report 4655067-2 (Version None)
Quarter: 2005Q2

REPORT INFORMATION
  Report Type: 
  Country: None (occurrence: None)
  Receive Date: 20050503
  Receipt Date: 20050425
  Transmission Date: 20051028
  Serious: Yes (Hospitalization)
  Sender: FDA-Public Use
  Company Number: 2005CG00818

PATIENT
  Age: 54 Year
  Sex: Female
  Weight: 60 kg

DRUGS (10)
  1. MOPRAL [Suspect]
     Dosage: 20 MG QD PO
     Route: 048
     Dates: start: 20050310, end: 20050315
  2. TOPALGIC ^HOUDE^ [Suspect]
     Dates: start: 20050308, end: 20050315
  3. SOPROL [Suspect]
     Dosage: 1 DF QD PO
     Route: 048
     Dates: start: 20050310, end: 20050311
  4. AUGMENTIN '125' [Suspect]
     Dosage: 1 G TID IV
     Route: 042
     Dates: start: 20050308, end: 20050309
  5. PERFALAN [Suspect]
     Dosage: 1 G TID
     Dates: start: 20050308, end: 20050315
  6. KARDEGIC / FRA/ [Suspect]
     Dosage: 160 MG QD PO
     Route: 048
     Dates: start: 20050311, end: 20050314
  7. TAHOR [Suspect]
     Dates: start: 20050310, end: 20050310
  8. PLAVIX [Suspect]
     Dates: start: 20050310, end: 20050310
  9. SPASFON [Suspect]
     Dates: start: 20050308, end: 20050314
  10. ELISOR [Suspect]
     Dates: start: 20050310, end: 20050315

REACTIONS (3)
  - PRURIGO [None]
  - RASH MACULO-PAPULAR [None]
  - URTICARIA [None]
